FAERS Safety Report 23644171 (Version 2)
Quarter: 2024Q2

REPORT INFORMATION
  Report Type: Spontaneous
  Country: JP (occurrence: JP)
  Receive Date: 20240318
  Receipt Date: 20240607
  Transmission Date: 20240716
  Serious: Yes (Hospitalization, Other)
  Sender: FDA-Public Use
  Company Number: JP-DSPHARMA-2024SMP003262

PATIENT

DRUGS (18)
  1. LATUDA [Suspect]
     Active Substance: LURASIDONE HYDROCHLORIDE
     Indication: Schizophrenia
     Dosage: 80 MG, QD
     Route: 048
  2. BLONANSERIN [Suspect]
     Active Substance: BLONANSERIN
     Indication: Schizophrenia
     Dosage: UNK, ADMINISTERED FROM THE 40TH DAY OF HOSPITALIZATION
     Route: 065
  3. HALOPERIDOL [Suspect]
     Active Substance: HALOPERIDOL
     Indication: Schizophrenia
     Dosage: 5 MG, QD
     Route: 041
  4. HALOPERIDOL [Suspect]
     Active Substance: HALOPERIDOL
     Dosage: 5 MG, QD
     Route: 030
  5. HALOPERIDOL [Suspect]
     Active Substance: HALOPERIDOL
     Indication: Schizophrenia
     Dosage: 6 MG, QD
     Route: 048
  6. RISPERIDONE [Suspect]
     Active Substance: RISPERIDONE
     Indication: Schizophrenia
     Dosage: 4 MG, QD
     Route: 065
  7. VALBENAZINE TOSYLATE [Suspect]
     Active Substance: VALBENAZINE TOSYLATE
     Indication: Tardive dyskinesia
     Dosage: UNK
     Route: 065
  8. CHLORPROMAZINE HYDROCHLORIDE [Concomitant]
     Active Substance: CHLORPROMAZINE HYDROCHLORIDE
     Dosage: 100 MG, BID, AFTER BREAKFAST AND DINNER
     Route: 065
  9. CHLORPROMAZINE HYDROCHLORIDE [Concomitant]
     Active Substance: CHLORPROMAZINE HYDROCHLORIDE
     Dosage: 300 MG, QD
     Route: 065
  10. CHLORPROMAZINE HYDROCHLORIDE [Concomitant]
     Active Substance: CHLORPROMAZINE HYDROCHLORIDE
     Dosage: 400 MG, QD
     Route: 065
  11. CHLORPROMAZINE HYDROCHLORIDE [Concomitant]
     Active Substance: CHLORPROMAZINE HYDROCHLORIDE
     Dosage: 500 MG, QD
     Route: 065
  12. CHLORPROMAZINE HYDROCHLORIDE [Concomitant]
     Active Substance: CHLORPROMAZINE HYDROCHLORIDE
     Dosage: UNK
     Route: 065
  13. DIAZEPAM [Concomitant]
     Active Substance: DIAZEPAM
     Dosage: 2 MG, BID, AFTER BREAKFAST AND DINNER
     Route: 065
  14. RILMAZAFONE HYDROCHLORIDE [Concomitant]
     Active Substance: RILMAZAFONE HYDROCHLORIDE
     Dosage: 2 MG, BID, BEFORE BEDTIME
     Route: 065
  15. LORAZEPAM [Concomitant]
     Active Substance: LORAZEPAM
     Dosage: 0.5 MG, QD, AS NEEDED, WHEN HAVING ANXIETY
     Route: 065
  16. LEMBOREXANT [Concomitant]
     Active Substance: LEMBOREXANT
     Dosage: 2.5 MG, QD, AS NEEDED, WHEN HAVING SLEEPLESSNESS
     Route: 065
  17. MAGNESIUM OXIDE [Concomitant]
     Active Substance: MAGNESIUM OXIDE
     Dosage: 250 MG, BID, AFTER BREAKFAST AND DINNER
     Route: 065
  18. RIVOTRIL [Concomitant]
     Active Substance: CLONAZEPAM
     Dosage: 2 MG, ADMINISTERED FROM THE SECOND DAY OF HOSPITALIZATION
     Route: 065

REACTIONS (18)
  - Tardive dyskinesia [Unknown]
  - Pulmonary embolism [Unknown]
  - Suicidal ideation [Unknown]
  - Tremor [Not Recovered/Not Resolved]
  - Tremor [Not Recovered/Not Resolved]
  - Tremor [Not Recovered/Not Resolved]
  - Tremor [Not Recovered/Not Resolved]
  - Head titubation [Not Recovered/Not Resolved]
  - Tremor [Not Recovered/Not Resolved]
  - Tremor [Not Recovered/Not Resolved]
  - Gait disturbance [Recovering/Resolving]
  - Gait disturbance [Recovering/Resolving]
  - Malnutrition [Recovering/Resolving]
  - Conversion disorder [Unknown]
  - Psychiatric symptom [Unknown]
  - Oliguria [Unknown]
  - Euphoric mood [Recovered/Resolved]
  - Intentional dose omission [Unknown]
